FAERS Safety Report 24575708 (Version 1)
Quarter: 2024Q4

REPORT INFORMATION
  Report Type: Spontaneous
  Country: US (occurrence: None)
  Receive Date: 20241101
  Receipt Date: 20241101
  Transmission Date: 20250115
  Serious: No
  Sender: Public
  Company Number: None

PATIENT
  Age: 59 Year
  Sex: Male

DRUGS (1)
  1. LISINOPRIL [Suspect]
     Active Substance: LISINOPRIL
     Indication: Hypertension
     Dosage: 10.00 MG DAILY ORAL
     Route: 048
     Dates: start: 20230713

REACTIONS (1)
  - Angioedema [None]

NARRATIVE: CASE EVENT DATE: 20240229
